FAERS Safety Report 7426480-5 (Version None)
Quarter: 2011Q2

REPORT INFORMATION
  Report Type: 
  Country: None (occurrence: None)
  Receive Date: 20110420
  Receipt Date: 20110406
  Transmission Date: 20111010
  Serious: No
  Sender: FDA-Public Use
  Company Number: PHHY2009BR39198

PATIENT
  Age: 32 Year
  Sex: Female
  Weight: 67 kg

DRUGS (1)
  1. CODATEN [Suspect]
     Indication: MYALGIA
     Dosage: 1 DF, Q12H
     Route: 048
     Dates: start: 20081201

REACTIONS (2)
  - PAIN [None]
  - DRUG EXPOSURE DURING PREGNANCY [None]
